FAERS Safety Report 12398522 (Version 4)
Quarter: 2017Q1

REPORT INFORMATION
  Report Type: Report from Study
  Country: FR (occurrence: FR)
  Receive Date: 20160524
  Receipt Date: 20170209
  Transmission Date: 20170428
  Serious: Yes (Hospitalization, Disabling, Other)
  Sender: FDA-Public Use
  Company Number: FR-ASTELLAS-2016US013803

PATIENT
  Age: 74 Year
  Sex: Male

DRUGS (24)
  1. TACROLIMUS. [Interacting]
     Active Substance: TACROLIMUS
     Route: 048
     Dates: start: 20160406, end: 20160518
  2. CELLCEPT [Concomitant]
     Active Substance: MYCOPHENOLATE MOFETIL\MYCOPHENOLATE MOFETIL HYDROCHLORIDE
     Indication: RENAL TRANSPLANT
     Route: 048
     Dates: start: 20150810
  3. CELLCEPT [Concomitant]
     Active Substance: MYCOPHENOLATE MOFETIL\MYCOPHENOLATE MOFETIL HYDROCHLORIDE
     Route: 048
     Dates: start: 201509, end: 201511
  4. TACROLIMUS. [Suspect]
     Active Substance: TACROLIMUS
     Indication: PROPHYLAXIS AGAINST TRANSPLANT REJECTION
     Route: 048
     Dates: start: 20151104
  5. TACROLIMUS. [Interacting]
     Active Substance: TACROLIMUS
     Route: 048
     Dates: start: 20160519, end: 20160616
  6. LASILIX                            /00032601/ [Concomitant]
     Active Substance: FUROSEMIDE
     Route: 065
     Dates: start: 201604, end: 201606
  7. TACROLIMUS. [Interacting]
     Active Substance: TACROLIMUS
     Indication: RENAL TRANSPLANT
     Route: 048
     Dates: start: 20151119, end: 20160219
  8. LASILIX                            /00032601/ [Concomitant]
     Active Substance: FUROSEMIDE
     Route: 065
     Dates: start: 201603, end: 201604
  9. SPECIAFOLDINE [Concomitant]
     Active Substance: FOLIC ACID
     Indication: FOLATE DEFICIENCY
     Route: 048
     Dates: start: 20150824
  10. TACROLIMUS. [Interacting]
     Active Substance: TACROLIMUS
     Route: 048
     Dates: start: 20160617
  11. MECIR LP [Interacting]
     Active Substance: TAMSULOSIN HYDROCHLORIDE
     Indication: BENIGN PROSTATIC HYPERPLASIA
     Dosage: 0.4 MG, ONCE DAILY
     Route: 048
     Dates: start: 20151103
  12. ATACAND [Concomitant]
     Active Substance: CANDESARTAN CILEXETIL
     Indication: HYPERTENSION
     Route: 065
     Dates: start: 201511, end: 201602
  13. CANDESARTAN [Concomitant]
     Active Substance: CANDESARTAN
     Indication: HYPERTENSION
     Route: 048
     Dates: start: 20150827, end: 20160219
  14. NEBIVOLOL. [Concomitant]
     Active Substance: NEBIVOLOL
     Indication: HYPERTENSION
     Route: 048
     Dates: start: 20150824
  15. LASILIX                            /00032601/ [Concomitant]
     Active Substance: FUROSEMIDE
     Route: 065
     Dates: start: 201606
  16. TACROLIMUS. [Interacting]
     Active Substance: TACROLIMUS
     Route: 048
     Dates: start: 20160220, end: 20160405
  17. REPAGLINIDE. [Concomitant]
     Active Substance: REPAGLINIDE
     Indication: DIABETES MELLITUS
     Route: 065
     Dates: start: 201508, end: 201602
  18. NOVONORM [Concomitant]
     Active Substance: REPAGLINIDE
     Indication: DIABETES MELLITUS
     Route: 048
     Dates: start: 20150824, end: 20160219
  19. CELLCEPT [Concomitant]
     Active Substance: MYCOPHENOLATE MOFETIL\MYCOPHENOLATE MOFETIL HYDROCHLORIDE
     Route: 048
     Dates: start: 201511, end: 201602
  20. CELLCEPT [Concomitant]
     Active Substance: MYCOPHENOLATE MOFETIL\MYCOPHENOLATE MOFETIL HYDROCHLORIDE
     Route: 048
     Dates: start: 201602
  21. TARDYFERON [Concomitant]
     Active Substance: FERROUS SULFATE
     Indication: BLOOD IRON
     Route: 048
     Dates: start: 20150824
  22. ATORVASTATIN [Concomitant]
     Active Substance: ATORVASTATIN
     Indication: DYSLIPIDAEMIA
     Route: 048
     Dates: start: 20150824
  23. LASILIX                            /00032601/ [Concomitant]
     Active Substance: FUROSEMIDE
     Indication: HYPERTENSION
     Route: 048
     Dates: start: 20150827
  24. KARDEGIC [Concomitant]
     Active Substance: ASPIRIN LYSINE
     Indication: ANGIOPATHY
     Route: 048
     Dates: start: 20150824

REACTIONS (6)
  - Vascular dementia [Not Recovered/Not Resolved]
  - Drug interaction [Unknown]
  - Transplant rejection [Recovered/Resolved with Sequelae]
  - Treatment noncompliance [Unknown]
  - Drug dose omission [Unknown]
  - Cognitive disorder [Not Recovered/Not Resolved]

NARRATIVE: CASE EVENT DATE: 20151202
